FAERS Safety Report 6016243-X (Version None)
Quarter: 2008Q4

REPORT INFORMATION
  Report Type: 
  Country: None (occurrence: None)
  Receive Date: 20081218
  Receipt Date: 20081202
  Transmission Date: 20090506
  Serious: Yes (Death)
  Sender: FDA-Public Use
  Company Number: KV200800824

PATIENT
  Age: 67 Year
  Sex: Male

DRUGS (1)
  1. MORPHINE SULFATE [Suspect]
     Indication: CANCER PAIN
     Dosage: 15 MG, Q 12 HOURS, ORAL
     Route: 048
     Dates: start: 20081013, end: 20081024

REACTIONS (6)
  - COMMUNICATION DISORDER [None]
  - DISEASE PROGRESSION [None]
  - DYSPHONIA [None]
  - HEPATIC FAILURE [None]
  - OVERDOSE [None]
  - PANCREATIC DISORDER [None]
